FAERS Safety Report 5837692-6 (Version None)
Quarter: 2008Q3

REPORT INFORMATION
  Report Type: 
  Country: None (occurrence: None)
  Receive Date: 20080807
  Receipt Date: 20080723
  Transmission Date: 20090109
  Serious: Yes (Hospitalization)
  Sender: FDA-Public Use
  Company Number: NL-GENENTECH-264995

PATIENT
  Sex: Male

DRUGS (4)
  1. AVASTIN [Suspect]
     Indication: COLON CANCER METASTATIC
     Dosage: UNK
     Route: 042
     Dates: start: 20080626
  2. CAPECITABINE [Concomitant]
     Indication: COLON CANCER
     Dosage: UNK
     Dates: start: 20080626
  3. OXALIPLATIN [Concomitant]
     Indication: COLON CANCER
     Dosage: UNK
     Dates: start: 20080626
  4. NEXIUM [Concomitant]
     Indication: DRUG USE FOR UNKNOWN INDICATION

REACTIONS (2)
  - BLINDNESS TRANSIENT [None]
  - HEADACHE [None]
